FAERS Safety Report 13517191 (Version 1)
Quarter: 2017Q2

REPORT INFORMATION
  Report Type: Spontaneous
  Country: US (occurrence: US)
  Receive Date: 20170505
  Receipt Date: 20170505
  Transmission Date: 20170830
  Serious: Yes (Hospitalization)
  Sender: FDA-Public Use
  Company Number: None

PATIENT
  Age: 48 Year
  Sex: Male
  Weight: 148.3 kg

DRUGS (10)
  1. CATAPRES [Concomitant]
     Active Substance: CLONIDINE HYDROCHLORIDE
  2. CYANOCOBALAM [Concomitant]
  3. LIPITOR [Concomitant]
     Active Substance: ATORVASTATIN CALCIUM
  4. PHENERGAN [Suspect]
     Active Substance: PROMETHAZINE HYDROCHLORIDE
     Indication: DUODENAL SWITCH
     Dosage: DATES OF USE - RECENT
     Route: 042
  5. AMLODIPINE [Concomitant]
     Active Substance: AMLODIPINE BESYLATE
  6. EPIPEN JR [Concomitant]
     Active Substance: EPINEPHRINE
  7. AZILSARTAN [Concomitant]
     Active Substance: AZILSARTAN KAMEDOXOMIL
  8. LONITEN [Concomitant]
     Active Substance: MINOXIDIL
  9. NASONEX [Concomitant]
     Active Substance: MOMETASONE FUROATE
  10. HYDROMORPHONE [Suspect]
     Active Substance: HYDROMORPHONE
     Indication: DUODENAL SWITCH
     Dosage: DOSE - 1-2 MG - IV - Q2HR PRN?DATES OF USE - RECENT
     Route: 042

REACTIONS (3)
  - Respiratory failure [None]
  - Unresponsive to stimuli [None]
  - Hypoxia [None]

NARRATIVE: CASE EVENT DATE: 20170126
